FAERS Safety Report 21684498 (Version 1)
Quarter: 2022Q4

REPORT INFORMATION
  Report Type: Spontaneous
  Country: FR (occurrence: FR)
  Receive Date: 20221205
  Receipt Date: 20221205
  Transmission Date: 20230113
  Serious: Yes (Death, Life-Threatening, Other)
  Sender: FDA-Public Use
  Company Number: None

PATIENT
  Age: 65 Year
  Sex: Male
  Weight: 82.5 kg

DRUGS (2)
  1. IDARUBICIN [Suspect]
     Active Substance: IDARUBICIN
     Indication: Acute myeloid leukaemia
     Dosage: 12 MG/M2, DAILY
     Route: 042
     Dates: start: 20220726, end: 20220729
  2. CYTARABINE [Suspect]
     Active Substance: CYTARABINE
     Indication: Acute myeloid leukaemia
     Dosage: 1 MG/M2, 2X/DAY (EVERY 12 HOURS)
     Route: 042
     Dates: start: 20220726, end: 20220729

REACTIONS (2)
  - Neoplasm progression [Fatal]
  - Myocarditis [Recovering/Resolving]

NARRATIVE: CASE EVENT DATE: 20220729
